FAERS Safety Report 6207894-8 (Version None)
Quarter: 2009Q2

REPORT INFORMATION
  Report Type: 
  Country: None (occurrence: None)
  Receive Date: 20090529
  Receipt Date: 20090525
  Transmission Date: 20091009
  Serious: Yes (Hospitalization)
  Sender: FDA-Public Use
  Company Number: FR-TEVA-196005ISR

PATIENT
  Age: 35 Year
  Sex: Male

DRUGS (1)
  1. ZOLPIDEM [Suspect]

REACTIONS (11)
  - BLISTER [None]
  - CYANOSIS [None]
  - DRUG ABUSE [None]
  - FINGER AMPUTATION [None]
  - GENERAL PHYSICAL HEALTH DETERIORATION [None]
  - INFLAMMATION [None]
  - INTENTIONAL DRUG MISUSE [None]
  - ISCHAEMIA [None]
  - PULSE PRESSURE DECREASED [None]
  - TREATMENT NONCOMPLIANCE [None]
  - WRONG TECHNIQUE IN DRUG USAGE PROCESS [None]
